FAERS Safety Report 14317779 (Version 2)
Quarter: 2020Q2

REPORT INFORMATION
  Report Type: Spontaneous
  Country: ES (occurrence: ES)
  Receive Date: 20171222
  Receipt Date: 20200624
  Transmission Date: 20200713
  Serious: Yes (Hospitalization, Other)
  Sender: FDA-Public Use
  Company Number: ES-PFIZER INC-2017544267

PATIENT
  Age: 36 Year
  Sex: Female

DRUGS (2)
  1. CARBOPLATIN. [Suspect]
     Active Substance: CARBOPLATIN
     Dosage: 400 MG/M2, CYCLIC (EVERY 3 WEEKS (10 DEGREE CYCLE))
     Route: 042
     Dates: start: 201605, end: 20170125
  2. CARBOPLATIN. [Suspect]
     Active Substance: CARBOPLATIN
     Indication: OVARIAN CANCER
     Dosage: 221 MG, EVERY 3 WEEKS
     Route: 042
     Dates: start: 201605, end: 20170208

REACTIONS (2)
  - Haemolytic anaemia [Recovered/Resolved]
  - Autoimmune haemolytic anaemia [Recovered/Resolved]

NARRATIVE: CASE EVENT DATE: 20170127
